FAERS Safety Report 5978649-4 (Version None)
Quarter: 2008Q4

REPORT INFORMATION
  Report Type: 
  Country: None (occurrence: None)
  Receive Date: 20081204
  Receipt Date: 20081203
  Transmission Date: 20090506
  Serious: Yes (Other)
  Sender: FDA-Public Use
  Company Number: JP-BRACCO-001166

PATIENT
  Sex: Male

DRUGS (22)
  1. IOPAMIDOL [Suspect]
     Indication: VENOUS THROMBOSIS LIMB
     Route: 042
     Dates: start: 20080905, end: 20080905
  2. UROKINASE [Concomitant]
     Route: 065
     Dates: start: 20080901, end: 20080919
  3. SOL-MELCORT [Concomitant]
     Route: 065
     Dates: start: 20080915, end: 20080915
  4. ATARAX [Concomitant]
     Route: 065
     Dates: start: 20080924, end: 20080924
  5. ATARAX [Concomitant]
     Route: 065
     Dates: start: 20080919, end: 20080919
  6. ATARAX [Concomitant]
     Route: 065
     Dates: start: 20080923, end: 20080923
  7. NOVO HEPARIN CALCIUM [Concomitant]
     Route: 065
     Dates: start: 20080901, end: 20080919
  8. POLARAMINE                         /00072502/ [Concomitant]
     Route: 065
     Dates: start: 20080915, end: 20080915
  9. LEBENIN [Concomitant]
     Route: 048
     Dates: start: 20080923
  10. RINDERON #1 [Concomitant]
     Route: 065
     Dates: start: 20080924, end: 20080924
  11. MEROPEN [Concomitant]
     Route: 065
     Dates: start: 20080913, end: 20080915
  12. RABEPRAZOLE SODIUM [Concomitant]
     Route: 048
     Dates: start: 20080901
  13. LIPITOR                            /01326102/ [Concomitant]
     Route: 048
     Dates: start: 20080901, end: 20080919
  14. WARFARIN                           /00014801/ [Concomitant]
     Route: 048
     Dates: start: 20080901
  15. TERBINAFINE HCL [Concomitant]
     Route: 048
     Dates: start: 20080902, end: 20080915
  16. LOXOPROFEN SODIUM [Concomitant]
     Indication: PAIN
     Route: 048
     Dates: start: 20080903, end: 20080908
  17. LOXOPROFEN SODIUM [Concomitant]
     Route: 065
     Dates: start: 20080910, end: 20080913
  18. CALONAL [Concomitant]
     Indication: PYREXIA
     Route: 048
     Dates: start: 20080905, end: 20080917
  19. VANCOMYCIN HYDROCHLORIDE [Concomitant]
     Route: 041
     Dates: start: 20080906, end: 20080919
  20. FORSENID [Concomitant]
     Indication: CONSTIPATION
     Route: 048
     Dates: start: 20080915, end: 20080915
  21. CETIRIZINE HYDROCHLORIDE [Concomitant]
     Route: 048
     Dates: start: 20080915, end: 20080915
  22. FUNGUARD [Concomitant]
     Route: 065
     Dates: start: 20080916, end: 20080916

REACTIONS (2)
  - HEPATIC FUNCTION ABNORMAL [None]
  - RASH [None]
